FAERS Safety Report 17657297 (Version 1)
Quarter: 2020Q2

REPORT INFORMATION
  Report Type: Spontaneous
  Country: US (occurrence: US)
  Receive Date: 20200410
  Receipt Date: 20200410
  Transmission Date: 20200713
  Serious: Yes (Hospitalization, Other)
  Sender: FDA-Public Use
  Company Number: US-ENDO PHARMACEUTICALS INC-2020-003190

PATIENT
  Age: 41 Year
  Sex: Male

DRUGS (1)
  1. AVEED [Suspect]
     Active Substance: TESTOSTERONE UNDECANOATE
     Indication: PRODUCT USED FOR UNKNOWN INDICATION
     Dosage: UNK UNKNOWN, WEEKLY
     Route: 042

REACTIONS (4)
  - Myocarditis [Unknown]
  - Drug abuse [Unknown]
  - Performance enhancing product use [Unknown]
  - Atrioventricular block complete [Recovered/Resolved]
